FAERS Safety Report 17598844 (Version 2)
Quarter: 2023Q4

REPORT INFORMATION
  Report Type: Spontaneous
  Country: US (occurrence: US)
  Receive Date: 20200330
  Receipt Date: 20231006
  Transmission Date: 20240109
  Serious: No
  Sender: FDA-Public Use
  Company Number: US-INDIVIOR US-INDV-123241-2020

PATIENT
  Sex: Male

DRUGS (4)
  1. SUBLOCADE [Suspect]
     Active Substance: BUPRENORPHINE
     Indication: Drug use disorder
     Dosage: 300 MILLIGRAM, ONE TIME DOSE
     Route: 058
     Dates: start: 2019
  2. SUBLOCADE [Suspect]
     Active Substance: BUPRENORPHINE
     Dosage: HALF OF A 300 MG SUBLOCADE SYRINGE, QMO
     Route: 058
  3. SUBOXONE [Suspect]
     Active Substance: BUPRENORPHINE HYDROCHLORIDE\NALOXONE HYDROCHLORIDE
     Indication: Drug use disorder
     Dosage: UNK (HALF A DOSE)
     Route: 065
  4. SUBOXONE [Suspect]
     Active Substance: BUPRENORPHINE HYDROCHLORIDE\NALOXONE HYDROCHLORIDE
     Indication: Headache

REACTIONS (9)
  - Off label use [Not Recovered/Not Resolved]
  - Constipation [Not Recovered/Not Resolved]
  - Drug withdrawal syndrome [Not Recovered/Not Resolved]
  - Drug dependence [Not Recovered/Not Resolved]
  - Headache [Not Recovered/Not Resolved]
  - Tremor [Not Recovered/Not Resolved]
  - Anxiety [Unknown]
  - Injection site induration [Not Recovered/Not Resolved]
  - Wrong technique in product usage process [Unknown]
